FAERS Safety Report 21093772 (Version 1)
Quarter: 2022Q3

REPORT INFORMATION
  Report Type: Spontaneous
  Country: US (occurrence: None)
  Receive Date: 20220716
  Receipt Date: 20220716
  Transmission Date: 20221027
  Serious: No
  Sender: FDA-Public Use
  Company Number: None

PATIENT
  Age: 64 Year
  Sex: Female
  Weight: 55.35 kg

DRUGS (12)
  1. PAXLOVID [Suspect]
     Active Substance: NIRMATRELVIR\RITONAVIR
     Indication: COVID-19
     Dosage: OTHER QUANTITY : 15 TABLET(S);?FREQUENCY : TWICE A DAY;?
     Route: 048
     Dates: start: 20220705, end: 20220710
  2. GABAPENTIN [Concomitant]
     Active Substance: GABAPENTIN
  3. PROPRANOLOL [Concomitant]
     Active Substance: PROPRANOLOL HYDROCHLORIDE
  4. SUMATRIPTAN [Concomitant]
     Active Substance: SUMATRIPTAN
  5. ALENDRONATE [Concomitant]
     Active Substance: ALENDRONATE SODIUM
  6. MULTI-VITAMIN [Concomitant]
     Active Substance: .ALPHA.-TOCOPHEROL ACETATE, DL-\ASCORBIC ACID\CYANOCOBALAMIN\FLUORIDE ION\FOLIC ACID\NIACIN\PYRIDOXI
  7. CALCIUM [Concomitant]
     Active Substance: CALCIUM
  8. VITAMIN B12 [Concomitant]
     Active Substance: CYANOCOBALAMIN
  9. PREVACID [Concomitant]
     Active Substance: LANSOPRAZOLE
  10. METAMUCIL [Concomitant]
     Active Substance: PLANTAGO SEED
  11. IBUPROFEN [Concomitant]
     Active Substance: IBUPROFEN
  12. ACETAMINOPHEN [Concomitant]
     Active Substance: ACETAMINOPHEN

REACTIONS (2)
  - COVID-19 [None]
  - Rebound effect [None]

NARRATIVE: CASE EVENT DATE: 20220712
